FAERS Safety Report 4942650-X (Version None)
Quarter: 2006Q1

REPORT INFORMATION
  Report Type: 
  Country: None (occurrence: None)
  Receive Date: 20060308
  Receipt Date: 20060302
  Transmission Date: 20060701
  Serious: Yes (Death, Other)
  Sender: FDA-Public Use
  Company Number: 200513447GDS

PATIENT
  Age: 23 Year
  Sex: Male
  Weight: 70 kg

DRUGS (2)
  1. AVELOX [Suspect]
     Indication: PNEUMONIA PRIMARY ATYPICAL
     Dosage: 400 MG, QD, INTRAVENOUS
     Route: 042
     Dates: start: 20050908, end: 20050912
  2. VANCOMYCIN [Concomitant]

REACTIONS (6)
  - ACUTE RESPIRATORY FAILURE [None]
  - CHLAMYDIAL INFECTION [None]
  - MYCOPLASMA INFECTION [None]
  - PSEUDOMONAS INFECTION [None]
  - SEPSIS [None]
  - STAPHYLOCOCCAL INFECTION [None]
